FAERS Safety Report 5335128-5 (Version None)
Quarter: 2007Q2

REPORT INFORMATION
  Report Type: 
  Country: None (occurrence: None)
  Receive Date: 20070525
  Receipt Date: 20070516
  Transmission Date: 20071010
  Serious: Yes (Hospitalization, Other)
  Sender: FDA-Public Use
  Company Number: US-ABBOTT-07P-163-0368579-00

PATIENT
  Sex: Male
  Weight: 63.56 kg

DRUGS (2)
  1. HUMIRA [Suspect]
     Indication: RHEUMATOID ARTHRITIS
     Route: 058
     Dates: start: 20060101, end: 20070401
  2. HUMIRA [Suspect]
     Route: 058
     Dates: start: 20070401

REACTIONS (5)
  - BURSA REMOVAL [None]
  - RASH [None]
  - SKIN INFECTION [None]
  - WOUND COMPLICATION [None]
  - WOUND INFECTION [None]
